FAERS Safety Report 5662507-9 (Version None)
Quarter: 2008Q1

REPORT INFORMATION
  Report Type: 
  Country: None (occurrence: None)
  Receive Date: 20080313
  Receipt Date: 20080304
  Transmission Date: 20080703
  Serious: Yes (Other)
  Sender: FDA-Public Use
  Company Number: BR-JNJFOC-20080301867

PATIENT
  Age: 68 Year
  Sex: Female
  Weight: 54 kg

DRUGS (2)
  1. HALDOL [Suspect]
     Indication: ABNORMAL BEHAVIOUR
     Route: 048
  2. NEOZINE [Concomitant]
     Indication: PARKINSON'S DISEASE

REACTIONS (3)
  - DRUG INEFFECTIVE [None]
  - LOSS OF CONSCIOUSNESS [None]
  - TREMOR [None]
